FAERS Safety Report 9705010 (Version 1)
Quarter: 2013Q4

REPORT INFORMATION
  Report Type: Report from Study
  Country: US (occurrence: US)
  Receive Date: 20131122
  Receipt Date: 20131122
  Transmission Date: 20140711
  Serious: Yes (Hospitalization, Other)
  Sender: FDA-Public Use
  Company Number: US-ABBVIE-13P-163-1169430-00

PATIENT
  Age: 19 Year
  Sex: Male

DRUGS (1)
  1. HUMIRA [Suspect]
     Indication: CROHN^S DISEASE
     Dates: start: 20130618

REACTIONS (16)
  - Hypophagia [Unknown]
  - Abdominal hernia [Unknown]
  - Pyoderma gangrenosum [Recovered/Resolved]
  - Colitis [Recovering/Resolving]
  - Rash papular [Not Recovered/Not Resolved]
  - Rash [Not Recovered/Not Resolved]
  - Dehydration [Not Recovered/Not Resolved]
  - Vomiting [Unknown]
  - Nausea [Recovering/Resolving]
  - Crohn^s disease [Recovering/Resolving]
  - Abdominal pain [Recovering/Resolving]
  - Heart rate increased [Unknown]
  - Stress [Unknown]
  - Anaemia [Unknown]
  - Hypersensitivity [Unknown]
  - Weight decreased [Recovering/Resolving]
